FAERS Safety Report 5476517-8 (Version None)
Quarter: 2007Q3

REPORT INFORMATION
  Report Type: 
  Country: None (occurrence: None)
  Receive Date: 20070924
  Receipt Date: 20070409
  Transmission Date: 20080115
  Serious: Yes (Other)
  Sender: FDA-Public Use
  Company Number: PHEH2007US03521

PATIENT
  Age: 40 Year
  Sex: Female

DRUGS (3)
  1. FEMARA [Suspect]
     Indication: BREAST CANCER
     Dosage: 2.5 MG, QD, ORAL
     Route: 048
     Dates: start: 20060919, end: 20061101
  2. CLONIDINE HCL [Concomitant]
  3. EFFEXOR [Concomitant]

REACTIONS (9)
  - CARBOHYDRATE ANTIGEN 15-3 INCREASED [None]
  - CARCINOEMBRYONIC ANTIGEN INCREASED [None]
  - CONSTIPATION [None]
  - DIZZINESS [None]
  - HOT FLUSH [None]
  - HYPERTENSION [None]
  - LYMPHOCYTE COUNT DECREASED [None]
  - MYALGIA [None]
  - PAIN [None]
